FAERS Safety Report 8233314-8 (Version None)
Quarter: 2012Q1

REPORT INFORMATION
  Report Type: 
  Country: None (occurrence: None)
  Receive Date: 20120323
  Receipt Date: 20120323
  Transmission Date: 20120608
  Serious: Yes (Hospitalization, Disabling)
  Sender: FDA-Public Use
  Company Number: None

PATIENT
  Age: 79 Year
  Sex: Female
  Weight: 85 kg

DRUGS (1)
  1. COUMADIN 2MG BRISTOL-MEYER SQUIBB [Suspect]
     Dosage: 4 MG (2 X 2MG) DAILY PO BRAND NAME SINCE JUNE 2011
     Route: 048

REACTIONS (2)
  - PRODUCT QUALITY ISSUE [None]
  - EMBOLIC STROKE [None]
